FAERS Safety Report 5694338-8 (Version None)
Quarter: 2008Q2

REPORT INFORMATION
  Report Type: 
  Country: None (occurrence: None)
  Receive Date: 20080404
  Receipt Date: 20080327
  Transmission Date: 20081010
  Serious: Yes (Death, Life-Threatening)
  Sender: FDA-Public Use
  Company Number: US-BAYER-200818048NA

PATIENT
  Age: 59 Year
  Sex: Male
  Weight: 102 kg

DRUGS (3)
  1. MAGNEVIST SINGLE USE [Suspect]
     Indication: NUCLEAR MAGNETIC RESONANCE IMAGING BRAIN
     Dosage: TOTAL DAILY DOSE: 20 ML  UNIT DOSE: 20 ML
     Route: 042
     Dates: start: 20080319, end: 20080319
  2. TYSABRI [Concomitant]
  3. INHALER [Concomitant]
     Route: 055

REACTIONS (2)
  - CONVULSION [None]
  - DYSPNOEA [None]
